FAERS Safety Report 14481948 (Version 1)
Quarter: 2018Q1

REPORT INFORMATION
  Report Type: Spontaneous
  Country: US (occurrence: US)
  Receive Date: 20180202
  Receipt Date: 20180202
  Transmission Date: 20180509
  Serious: No
  Sender: FDA-Public Use
  Company Number: None

PATIENT
  Age: 60 Year
  Sex: Male
  Weight: 107.1 kg

DRUGS (7)
  1. L-CARNITINE [Concomitant]
     Active Substance: LEVOCARNITINE
  2. BIPAP [Concomitant]
     Active Substance: DEVICE
  3. BACLOFEN. [Concomitant]
     Active Substance: BACLOFEN
  4. STATIN [Concomitant]
     Active Substance: UNSPECIFIED INGREDIENT
  5. MULTI VITAMIN [Concomitant]
     Active Substance: VITAMINS
  6. MAXIMUM STRENTH NASAL [Suspect]
     Active Substance: OXYMETAZOLINE HYDROCHLORIDE
     Indication: NASAL CONGESTION
     Dosage: ?          QUANTITY:0.75 OUNCE(S);OTHER ROUTE:NASALLY?
     Route: 045
     Dates: start: 20171215, end: 20171215
  7. VITAMIN D [Concomitant]
     Active Substance: CHOLECALCIFEROL

REACTIONS (2)
  - Product quality issue [None]
  - Nasal discomfort [None]

NARRATIVE: CASE EVENT DATE: 20171215
